FAERS Safety Report 24613501 (Version 1)
Quarter: 2024Q4

REPORT INFORMATION
  Report Type: Spontaneous
  Country: US (occurrence: None)
  Receive Date: 20241113
  Receipt Date: 20241113
  Transmission Date: 20250115
  Serious: Yes (Life-Threatening, Hospitalization)
  Sender: Public
  Company Number: None

PATIENT
  Age: 58 Year
  Sex: Female
  Weight: 76.88 kg

DRUGS (28)
  1. COTELLIC [Suspect]
     Active Substance: COBIMETINIB
     Indication: Metastatic malignant melanoma
     Dosage: FREQUENCY : DAILY;?
     Route: 048
     Dates: start: 20240902, end: 20240912
  2. VEMURAFENIB [Suspect]
     Active Substance: VEMURAFENIB
  3. KEYTRUDA [Suspect]
     Active Substance: PEMBROLIZUMAB
  4. ERYTHROMYCIN [Concomitant]
     Active Substance: ERYTHROMYCIN
  5. HYDROCORTISONE [Concomitant]
     Active Substance: HYDROCORTISONE
  6. TRIAMCINOLONE [Concomitant]
     Active Substance: TRIAMCINOLONE
  7. ZYRTEC [Concomitant]
     Active Substance: CETIRIZINE HYDROCHLORIDE
  8. iron plus vitamin c [Concomitant]
  9. vitamin a [Concomitant]
  10. VITAMIN C [Concomitant]
     Active Substance: ASCORBIC ACID
  11. VITAMIN B COMPLEX [Concomitant]
     Active Substance: CYANOCOBALAMIN\DEXPANTHENOL\NIACINAMIDE\PYRIDOXINE HYDROCHLORIDE\RIBOFLAVIN 5^-PHOSPHATE SODIUM\THIA
  12. VITAMIN D3 [Concomitant]
     Active Substance: CHOLECALCIFEROL
  13. TOCOPHEROL [Concomitant]
     Active Substance: TOCOPHEROL
  14. COENZYME Q10 [Concomitant]
     Active Substance: DIETARY SUPPLEMENT\UBIDECARENONE
  15. biotin/collagen/phytoceramides [Concomitant]
  16. billberry/zinc/copper/lutein/bioflavonoids [Concomitant]
  17. calcium with magnesium [Concomitant]
  18. folate complex [Concomitant]
  19. Andrew Lessman Cholestacare [Concomitant]
  20. Lions mane mushroom [Concomitant]
  21. GINKGO [Concomitant]
     Active Substance: GINKGO
  22. ASIAN GINSENG [Concomitant]
     Active Substance: ASIAN GINSENG
  23. HERBALS\TURMERIC [Concomitant]
     Active Substance: HERBALS\TURMERIC
  24. CRANBERRY [Concomitant]
     Active Substance: CRANBERRY
  25. GINGER [Concomitant]
     Active Substance: GINGER
  26. GRAPEFRUIT [Concomitant]
     Active Substance: GRAPEFRUIT
  27. PREDNISONE [Concomitant]
     Active Substance: PREDNISONE
  28. MOXIFLOXACIN [Concomitant]
     Active Substance: MOXIFLOXACIN

REACTIONS (57)
  - Neoplasm [None]
  - Drug ineffective [None]
  - Diarrhoea [None]
  - Muscle spasms [None]
  - Rash [None]
  - Swelling face [None]
  - Pyrexia [None]
  - Rash [None]
  - Rash macular [None]
  - Generalised oedema [None]
  - Blood creatine phosphokinase increased [None]
  - Choking [None]
  - Skin exfoliation [None]
  - Blister [None]
  - Arthralgia [None]
  - Conjunctival haemorrhage [None]
  - Mental disorder [None]
  - Toxicity to various agents [None]
  - Skin toxicity [None]
  - Loss of consciousness [None]
  - Intra-abdominal haematoma [None]
  - Atelectasis [None]
  - Pulmonary oedema [None]
  - Transfusion [None]
  - Red blood cell abnormality [None]
  - Haptoglobin decreased [None]
  - Respiratory distress [None]
  - Metabolic acidosis [None]
  - Procalcitonin increased [None]
  - Chromaturia [None]
  - Urine ketone body present [None]
  - Proteinuria [None]
  - Haematuria [None]
  - Urinary casts [None]
  - Hepatic function abnormal [None]
  - Meralgia paraesthetica [None]
  - Hypoaesthesia [None]
  - Hypervolaemia [None]
  - Glomerular filtration rate decreased [None]
  - Anion gap decreased [None]
  - Blood urea increased [None]
  - Blood calcium decreased [None]
  - Blood chloride increased [None]
  - Blood creatinine increased [None]
  - Blood glucose abnormal [None]
  - Blood lactate dehydrogenase increased [None]
  - Mean platelet volume abnormal [None]
  - Blood phosphorus abnormal [None]
  - Blood sodium decreased [None]
  - Immature granulocyte count increased [None]
  - Mean cell haemoglobin increased [None]
  - Polychromasia [None]
  - Red blood cell burr cells present [None]
  - Blood alkaline phosphatase increased [None]
  - Haemoglobin decreased [None]
  - Platelet count decreased [None]
  - Red blood cell count decreased [None]

NARRATIVE: CASE EVENT DATE: 20240912
